FAERS Safety Report 7628791-7 (Version None)
Quarter: 2011Q3

REPORT INFORMATION
  Report Type: 
  Country: None (occurrence: None)
  Receive Date: 20110722
  Receipt Date: 20110720
  Transmission Date: 20111222
  Serious: Yes (Other)
  Sender: FDA-Public Use
  Company Number: US-PFIZER INC-2011165512

PATIENT
  Sex: Male
  Weight: 76.19 kg

DRUGS (5)
  1. LORTAB [Concomitant]
     Indication: BACK PAIN
  2. LYRICA [Suspect]
     Indication: BACK PAIN
  3. LORTAB [Concomitant]
     Indication: INTERVERTEBRAL DISC PROTRUSION
     Dosage: 7.5/500 MG, AS NEEDED
     Route: 048
  4. ZOCOR [Concomitant]
     Indication: BLOOD CHOLESTEROL INCREASED
     Dosage: 20 MG, DAILY
     Route: 048
  5. LYRICA [Suspect]
     Indication: INTERVERTEBRAL DISC PROTRUSION
     Dosage: 50MG DAILY AT BED TIME
     Route: 048
     Dates: start: 20110718, end: 20110720

REACTIONS (3)
  - PENILE SWELLING [None]
  - SKIN DISCOLOURATION [None]
  - OEDEMA PERIPHERAL [None]
